FAERS Safety Report 5246728-5 (Version None)
Quarter: 2007Q1

REPORT INFORMATION
  Report Type: 
  Country: None (occurrence: None)
  Receive Date: 20070220
  Receipt Date: 20070206
  Transmission Date: 20070707
  Serious: Yes (Other)
  Sender: FDA-Public Use
  Company Number: 34177

PATIENT
  Age: 48 Year
  Sex: Male

DRUGS (1)
  1. LEUCOVORIN CALCIUM [Suspect]
     Indication: METASTATIC NEOPLASM
     Dosage: 800MG/IV
     Route: 042
     Dates: start: 20061009

REACTIONS (1)
  - PULMONARY EMBOLISM [None]
